FAERS Safety Report 6099912-5 (Version None)
Quarter: 2009Q1

REPORT INFORMATION
  Report Type: 
  Country: None (occurrence: None)
  Receive Date: 20090303
  Receipt Date: 20090223
  Transmission Date: 20090719
  Serious: Yes (Disabling, Other)
  Sender: FDA-Public Use
  Company Number: US-WYE-H04993008

PATIENT
  Sex: Female

DRUGS (5)
  1. PREMPRO [Suspect]
  2. COMBIPATCH [Suspect]
  3. ESTRADIOL [Suspect]
  4. PREMARIN [Suspect]
  5. PROVERA [Suspect]

REACTIONS (2)
  - BREAST CANCER [None]
  - PAGET'S DISEASE OF THE BREAST [None]
